FAERS Safety Report 12144968 (Version 1)
Quarter: 2016Q1

REPORT INFORMATION
  Report Type: Report from Study
  Country: US (occurrence: US)
  Receive Date: 20160304
  Receipt Date: 20160304
  Transmission Date: 20160526
  Serious: No
  Sender: FDA-Public Use
  Company Number: US-ABBVIE-16P-163-1546220-00

PATIENT
  Sex: Male

DRUGS (1)
  1. ANDROGEL [Suspect]
     Active Substance: TESTOSTERONE
     Indication: PRODUCT USED FOR UNKNOWN INDICATION
     Dosage: 3 PUMPS PER SHOULDER
     Route: 061
     Dates: start: 201501

REACTIONS (2)
  - Blood testosterone abnormal [Not Recovered/Not Resolved]
  - Drug dose omission [Recovered/Resolved]
